FAERS Safety Report 4477265-3 (Version None)
Quarter: 2004Q4

REPORT INFORMATION
  Report Type: 
  Country: None (occurrence: None)
  Receive Date: 20041018
  Receipt Date: 20031215
  Transmission Date: 20050328
  Serious: No
  Sender: FDA-Public Use
  Company Number: US-GLAXOSMITHKLINE-A0443187A

PATIENT
  Age: 3 Year
  Sex: Male

DRUGS (1)
  1. CEFTIN [Suspect]
     Dosage: 1TSP TWICE PER DAY
     Route: 048
     Dates: start: 20031119, end: 20031129

REACTIONS (5)
  - ARTHRALGIA [None]
  - CONTUSION [None]
  - JOINT SWELLING [None]
  - PRURITUS [None]
  - RASH [None]
